FAERS Safety Report 5319809-5 (Version None)
Quarter: 2007Q2

REPORT INFORMATION
  Report Type: 
  Country: None (occurrence: None)
  Receive Date: 20070509
  Receipt Date: 20070426
  Transmission Date: 20071010
  Serious: Yes (Other)
  Sender: FDA-Public Use
  Company Number: PHBS2007BE07418

PATIENT
  Age: 12 Year
  Sex: Male

DRUGS (1)
  1. PAMIDRONATE DISODIUM [Suspect]
     Indication: OSTEOGENESIS IMPERFECTA
     Dosage: 3 CONS. DAYS/EVERY 3 MONTHS

REACTIONS (2)
  - SPINAL DISORDER [None]
  - SPINAL X-RAY ABNORMAL [None]
